FAERS Safety Report 10883230 (Version 1)
Quarter: 2015Q1

REPORT INFORMATION
  Report Type: Report from Study
  Country: US (occurrence: US)
  Receive Date: 20150303
  Receipt Date: 20150303
  Transmission Date: 20150721
  Serious: Yes (Hospitalization, Other)
  Sender: FDA-Public Use
  Company Number: US-ABBVIE-15P-163-1353303-00

PATIENT
  Age: 39 Year
  Sex: Female
  Weight: 59.02 kg

DRUGS (1)
  1. HUMIRA [Suspect]
     Active Substance: ADALIMUMAB
     Indication: CROHN^S DISEASE
     Route: 058
     Dates: start: 2008

REACTIONS (5)
  - Postpartum haemorrhage [Recovered/Resolved]
  - Polymorphic eruption of pregnancy [Recovered/Resolved]
  - Placenta accreta [Recovered/Resolved]
  - Diastasis recti abdominis [Not Recovered/Not Resolved]
  - Gestational diabetes [Recovered/Resolved]

NARRATIVE: CASE EVENT DATE: 2012
